FAERS Safety Report 14331625 (Version 1)
Quarter: 2017Q4

REPORT INFORMATION
  Report Type: Spontaneous
  Country: DE (occurrence: DE)
  Receive Date: 20171228
  Receipt Date: 20171228
  Transmission Date: 20180321
  Serious: Yes (Hospitalization)
  Sender: FDA-Public Use
  Company Number: DE-WEST-WARD PHARMACEUTICALS CORP.-DE-H14001-17-05202

PATIENT
  Age: 72 Year
  Sex: Female
  Weight: 53 kg

DRUGS (5)
  1. LEUCOVORIN. [Suspect]
     Active Substance: LEUCOVORIN
     Indication: COLORECTAL CANCER METASTATIC
     Dosage: 630 MILLIGRAM DAILY; ()
     Route: 042
     Dates: start: 20171114, end: 20171128
  2. 5-FLUOROURACIL [Suspect]
     Active Substance: FLUOROURACIL
     Indication: COLORECTAL CANCER METASTATIC
     Dosage: 3770 MILLIGRAM DAILY; ()
     Route: 042
     Dates: start: 20171114, end: 20171128
  3. AVELUMAB [Suspect]
     Active Substance: AVELUMAB
     Indication: COLORECTAL CANCER METASTATIC
     Dosage: 530 MILLIGRAM DAILY; ONCE EVERY 2 WEEKS () ; CYCLICAL
     Route: 042
     Dates: start: 20171128, end: 20171128
  4. OXALIPLATIN. [Suspect]
     Active Substance: OXALIPLATIN
     Indication: COLORECTAL CANCER METASTATIC
     Dosage: 100 MILLIGRAM DAILY; ()
     Route: 042
     Dates: start: 20171114, end: 20171128
  5. CETUXIMAB. [Suspect]
     Active Substance: CETUXIMAB
     Indication: COLORECTAL CANCER METASTATIC
     Dosage: 392.5 MILLIGRAM DAILY; ()
     Route: 042
     Dates: start: 20171114, end: 20171128

REACTIONS (3)
  - Hot flush [Recovered/Resolved]
  - Proctitis [Recovered/Resolved]
  - Nausea [Recovered/Resolved]

NARRATIVE: CASE EVENT DATE: 20171128
